FAERS Safety Report 9043488 (Version 1)
Quarter: 2013Q1

REPORT INFORMATION
  Report Type: Report from Study
  Country: US (occurrence: US)
  Receive Date: 20130129
  Receipt Date: 20130129
  Transmission Date: 20140127
  Serious: No
  Sender: FDA-Public Use
  Company Number: US-ABBOTT-12P-163-0912797-00

PATIENT
  Sex: Male
  Weight: 131.66 kg

DRUGS (4)
  1. HUMIRA 40 MG/0.8 ML PEN [Suspect]
     Indication: RHEUMATOID ARTHRITIS
     Dates: start: 201108
  2. SULFAZINE [Concomitant]
     Indication: INFLAMMATION
  3. HYDROXYCHLOROQUINE [Concomitant]
     Indication: INFLAMMATION
  4. LOSARTAN [Concomitant]
     Indication: BLOOD PRESSURE

REACTIONS (2)
  - Dyspnoea [Not Recovered/Not Resolved]
  - Feeling abnormal [Not Recovered/Not Resolved]
